FAERS Safety Report 13424390 (Version 1)
Quarter: 2017Q2

REPORT INFORMATION
  Report Type: Spontaneous
  Country: US (occurrence: US)
  Receive Date: 20170410
  Receipt Date: 20170410
  Transmission Date: 20170830
  Serious: No
  Sender: FDA-Public Use
  Company Number: US-ASTRAZENECA-2017SE36183

PATIENT
  Sex: Female
  Weight: 89.5 kg

DRUGS (1)
  1. FASLODEX [Suspect]
     Active Substance: FULVESTRANT
     Dosage: 500.0MG ONCE/SINGLE ADMINISTRATION
     Route: 030
     Dates: start: 20170308

REACTIONS (2)
  - Malaise [Unknown]
  - Infection [Unknown]
